FAERS Safety Report 4697958-2 (Version None)
Quarter: 2005Q2

REPORT INFORMATION
  Report Type: 
  Country: None (occurrence: None)
  Receive Date: 20050621
  Receipt Date: 20050617
  Transmission Date: 20051028
  Serious: Yes (Other)
  Sender: FDA-Public Use
  Company Number: 214262

PATIENT
  Age: 12 Year
  Sex: Female
  Weight: 36.3 kg

DRUGS (1)
  1. NUTROPIN AQ [Suspect]
     Indication: BODY HEIGHT BELOW NORMAL
     Dosage: 2 MG, QD, SUBCUTANEOUS
     Route: 058
     Dates: start: 20040610

REACTIONS (1)
  - ORAL NEOPLASM [None]
